FAERS Safety Report 8738736 (Version 2)
Quarter: 2012Q4

REPORT INFORMATION
  Report Type: 
  Country: US (occurrence: US)
  Receive Date: 20120823
  Receipt Date: 20120906
  Transmission Date: 20130627
  Serious: Yes (Hospitalization, Other)
  Sender: FDA-Public Use
  Company Number: US-PFIZER INC-2012202714

PATIENT
  Age: 56 Year
  Sex: Female
  Weight: 77.1 kg

DRUGS (6)
  1. LYRICA [Suspect]
     Indication: FIBROMYALGIA
     Dosage: 200 mg, 2x/day
     Route: 048
  2. LYRICA [Suspect]
     Indication: PAIN
  3. LYRICA [Suspect]
     Indication: MUSCULOSKELETAL DISORDER
  4. TIZANIDINE [Concomitant]
     Dosage: 4 mg, 3x/day
  5. KLONOPIN [Concomitant]
     Dosage: 0.5 mg, 2x/day
  6. MORPHINE [Concomitant]
     Dosage: 15mg as needed and 30mg two times a day

REACTIONS (2)
  - Cellulitis [Recovering/Resolving]
  - Staphylococcal infection [Recovering/Resolving]
